FAERS Safety Report 17961070 (Version 1)
Quarter: 2020Q2

REPORT INFORMATION
  Report Type: Spontaneous
  Country: ES (occurrence: ES)
  Receive Date: 20200630
  Receipt Date: 20200630
  Transmission Date: 20200714
  Serious: Yes (Other)
  Sender: FDA-Public Use
  Company Number: ES-UCBSA-2020024975

PATIENT

DRUGS (1)
  1. CERTOLIZUMAB PEGOL [Suspect]
     Active Substance: CERTOLIZUMAB PEGOL
     Indication: PRODUCT USED FOR UNKNOWN INDICATION
     Dosage: UNK

REACTIONS (7)
  - Bacterial infection [Unknown]
  - Tuberculosis [Unknown]
  - Viral infection [Unknown]
  - Hepatotoxicity [Unknown]
  - Cardiovascular disorder [Unknown]
  - Fungal infection [Unknown]
  - Adverse reaction [Unknown]
